FAERS Safety Report 6983596-5 (Version None)
Quarter: 2010Q3

REPORT INFORMATION
  Report Type: 
  Country: None (occurrence: None)
  Receive Date: 20100914
  Receipt Date: 20080908
  Transmission Date: 20110219
  Serious: No
  Sender: FDA-Public Use
  Company Number: US-WYE-H05936208

PATIENT
  Age: 49 Year
  Sex: Female
  Weight: 64.47 kg

DRUGS (1)
  1. ADVIL LIQUI-GELS [Suspect]
     Indication: ANALGESIC THERAPY
     Route: 048
     Dates: start: 20080905

REACTIONS (4)
  - BLISTER [None]
  - COELIAC DISEASE [None]
  - CONDITION AGGRAVATED [None]
  - RASH [None]
